FAERS Safety Report 20052926 (Version 1)
Quarter: 2021Q4

REPORT INFORMATION
  Report Type: Report from Study
  Country: DE (occurrence: DE)
  Receive Date: 20211110
  Receipt Date: 20211110
  Transmission Date: 20220303
  Serious: Yes (Hospitalization)
  Sender: FDA-Public Use
  Company Number: None

PATIENT
  Age: 61 Year
  Sex: Female
  Weight: 53 kg

DRUGS (10)
  1. CARBOPLATIN [Suspect]
     Active Substance: CARBOPLATIN
     Indication: Non-small cell lung cancer
     Dosage: 400 MG MIN/ML
     Route: 041
     Dates: start: 20170227, end: 20170420
  2. ABRAXANE [Suspect]
     Active Substance: PACLITAXEL
     Indication: Non-small cell lung cancer
     Dosage: 100 MILLIGRAM/SQ. METER
     Route: 041
     Dates: start: 20170227, end: 20170320
  3. CHOLECALCIFEROL [Concomitant]
     Active Substance: CHOLECALCIFEROL
     Indication: Prophylaxis
     Route: 058
     Dates: start: 2016, end: 2017
  4. CITALOPRAM [Concomitant]
     Active Substance: CITALOPRAM HYDROBROMIDE
     Indication: Depression
     Dosage: 10 MILLIGRAM
     Route: 048
     Dates: start: 20170327, end: 2017
  5. PANTOZOL [Concomitant]
     Active Substance: PANTOPRAZOLE SODIUM
     Indication: Prophylaxis
     Dosage: 40 MILLIGRAM
     Route: 048
     Dates: end: 2017
  6. RAMIPRIL [Concomitant]
     Active Substance: RAMIPRIL
     Indication: Prophylaxis
     Dosage: 2.5 MILLIGRAM
     Route: 048
     Dates: start: 201701, end: 2017
  7. L-THYROXIN RATIOPHARM [Concomitant]
     Indication: Hypothyroidism
     Dosage: 125 MICROGRAM
     Route: 048
     Dates: end: 20170808
  8. HALDOL [Concomitant]
     Active Substance: HALOPERIDOL
     Indication: Movement disorder
     Dosage: 3.75 MILLIGRAM
     Route: 048
     Dates: start: 20170111, end: 2017
  9. spasmex [Concomitant]
     Indication: Multiple sclerosis
     Dosage: 30 MILLIGRAM
     Route: 048
     Dates: end: 20170808
  10. DALFAMPRIDINE [Concomitant]
     Active Substance: DALFAMPRIDINE
     Indication: Multiple sclerosis
     Dosage: 20 MILLIGRAM
     Route: 048
     Dates: end: 20170808

REACTIONS (2)
  - Pneumonia [Recovered/Resolved]
  - Off label use [Unknown]

NARRATIVE: CASE EVENT DATE: 20170408
